FAERS Safety Report 9981201 (Version 1)
Quarter: 2014Q1

REPORT INFORMATION
  Report Type: Spontaneous
  Country: SE (occurrence: None)
  Receive Date: 20140305
  Receipt Date: 20140305
  Transmission Date: 20141002
  Serious: Yes (Hospitalization)
  Sender: FDA-Public Use
  Company Number: SE-INDICUS PHARMA-000238

PATIENT
  Age: 66 Year
  Sex: Male

DRUGS (3)
  1. METFORMIN HYDROCHLORIDE [Suspect]
     Indication: TYPE 2 DIABETES MELLITUS
  2. ALLOPURINOL [Suspect]
     Indication: GOUT
  3. WARFARIN(WARFARIN) [Concomitant]

REACTIONS (15)
  - Lactic acidosis [None]
  - Toxicity to various agents [None]
  - Metabolic acidosis [None]
  - Blood pressure increased [None]
  - Nausea [None]
  - Vomiting [None]
  - Abdominal pain [None]
  - Wheezing [None]
  - Respiratory distress [None]
  - Poor peripheral circulation [None]
  - Altered state of consciousness [None]
  - Sepsis [None]
  - Dilatation ventricular [None]
  - Dialysis [None]
  - Renal failure [None]
